FAERS Safety Report 10992873 (Version 2)
Quarter: 2015Q2

REPORT INFORMATION
  Report Type: Spontaneous
  Country: US (occurrence: US)
  Receive Date: 20150406
  Receipt Date: 20150525
  Transmission Date: 20150821
  Serious: Yes (Other)
  Sender: FDA-Public Use
  Company Number: US-JNJFOC-20120308130

PATIENT
  Age: 33 Year
  Sex: Female
  Weight: 58.06 kg

DRUGS (11)
  1. REMICADE [Suspect]
     Active Substance: INFLIXIMAB
     Indication: COLITIS ULCERATIVE
     Dosage: FIRST INFUSION (WEEK 0). DOSE AT WEEK 0, 2, 6 AND EVERY 8 WEEKS THEREAFTER.
     Route: 042
     Dates: start: 20120203
  2. TYLENOL [Concomitant]
     Active Substance: ACETAMINOPHEN
     Indication: PREMEDICATION
     Route: 048
  3. PEPCID [Concomitant]
     Active Substance: FAMOTIDINE
     Indication: PREMEDICATION
     Dosage: 2 DAYS BEFORE INFLIXIMAB, 30 DURATION/DAY
     Route: 048
     Dates: start: 20120316
  4. REMICADE [Suspect]
     Active Substance: INFLIXIMAB
     Indication: COLITIS ULCERATIVE
     Dosage: SECOND INDUCTION DOSE AT WEEK 2
     Route: 042
     Dates: start: 20120216
  5. LIALDA [Concomitant]
     Active Substance: MESALAMINE
     Indication: COLITIS ULCERATIVE
     Dosage: 30 DURATION/DAY
     Route: 048
     Dates: start: 20111228
  6. CLARITIN [Concomitant]
     Active Substance: LORATADINE
     Indication: PREMEDICATION
     Dosage: 2 DAYS BEFORE INFLIXIMAB, 30 DURATION/DAY
     Route: 048
     Dates: start: 20120316
  7. OTHER THERAPEUTIC PRODUCTS [Concomitant]
     Active Substance: UNSPECIFIED INGREDIENT
     Dosage: 30 DURATION/DAY
     Route: 048
     Dates: start: 20120316
  8. MEDROL [Concomitant]
     Active Substance: METHYLPREDNISOLONE
     Indication: PREMEDICATION
     Dosage: ONE DAY PRIOR TO INFLIXIMAB
     Route: 048
     Dates: start: 20120316
  9. REMICADE [Suspect]
     Active Substance: INFLIXIMAB
     Indication: COLITIS ULCERATIVE
     Dosage: THIRD INDUCTION DOSE AT WEEK 6, EACH INFLIXIMAB VIALS DILUTED WITH PF AND 250 ML NS PER PROTOCOL
     Route: 042
     Dates: start: 20120322
  10. BENADRYL [Concomitant]
     Active Substance: DIPHENHYDRAMINE HYDROCHLORIDE
     Indication: PREMEDICATION
     Dosage: 2 DAYS BEFORE INFLIXIMAB, 30 DURATION/DAY
     Route: 048
     Dates: start: 20120316
  11. PREDNISONE. [Concomitant]
     Active Substance: PREDNISONE
     Indication: COLITIS ULCERATIVE
     Route: 048
     Dates: start: 20111228

REACTIONS (13)
  - Diarrhoea [Unknown]
  - Pain in jaw [Unknown]
  - Hyperchlorhydria [Unknown]
  - Stress [Unknown]
  - Headache [Unknown]
  - Tension [Unknown]
  - Anxiety [Unknown]
  - Throat irritation [Recovered/Resolved]
  - Pain in extremity [Recovered/Resolved]
  - Nausea [Recovered/Resolved]
  - Infusion related reaction [Recovered/Resolved]
  - Chest discomfort [Recovered/Resolved]
  - Myalgia [Recovered/Resolved]

NARRATIVE: CASE EVENT DATE: 2012
